FAERS Safety Report 22651322 (Version 1)
Quarter: 2023Q2

REPORT INFORMATION
  Report Type: Spontaneous
  Country: CN (occurrence: CN)
  Receive Date: 20230628
  Receipt Date: 20230628
  Transmission Date: 20230721
  Serious: Yes (Other)
  Sender: FDA-Public Use
  Company Number: CN-PFIZER INC-PV202300111009

PATIENT
  Age: 6 Month
  Sex: Female
  Weight: 8 kg

DRUGS (12)
  1. AMPICILLIN SODIUM\SULBACTAM SODIUM [Suspect]
     Active Substance: AMPICILLIN SODIUM\SULBACTAM SODIUM
     Indication: Anti-infective therapy
     Dosage: 0.6 G, 2X/DAY
     Route: 041
     Dates: start: 20230604, end: 20230605
  2. BACILLUS LICHENIFORMIS CAPSULE,LIVE [Concomitant]
     Indication: Infantile diarrhoea
     Dosage: 0.25 G, 2X/DAY
     Route: 048
     Dates: start: 20230602, end: 20230607
  3. IBUPROFEN [Concomitant]
     Active Substance: IBUPROFEN
     Indication: Upper respiratory tract infection
     Dosage: 2 ML, 1X/DAY
     Route: 048
     Dates: start: 20230602, end: 20230604
  4. SODIUM CHLORIDE [Concomitant]
     Active Substance: SODIUM CHLORIDE
     Indication: Vehicle solution use
     Dosage: 100 ML, 2X/DAY
     Route: 041
     Dates: start: 20230604, end: 20230605
  5. POTASSIUM CHLORIDE [Concomitant]
     Active Substance: POTASSIUM CHLORIDE
     Indication: Blood potassium abnormal
     Dosage: 2 ML, 1X/DAY
     Route: 041
     Dates: start: 20230602, end: 20230606
  6. METHYLPREDNISOLONE SODIUM SUCCINATE [Concomitant]
     Active Substance: METHYLPREDNISOLONE SODIUM SUCCINATE
     Indication: Upper respiratory tract infection
     Dosage: 15 MG, 1X/DAY
     Route: 041
     Dates: start: 20230602, end: 20230602
  7. SODIUM CHLORIDE [Concomitant]
     Active Substance: SODIUM CHLORIDE
     Indication: Infantile diarrhoea
     Dosage: 3 ML, 1X/DAY
     Route: 041
     Dates: start: 20230603, end: 20230606
  8. SODIUM BICARBONATE [Concomitant]
     Active Substance: SODIUM BICARBONATE
     Indication: Infantile diarrhoea
     Dosage: 5 ML, 1X/DAY
     Route: 041
     Dates: start: 20230602, end: 20230606
  9. DEXTROSE\SODIUM CHLORIDE [Concomitant]
     Active Substance: DEXTROSE\SODIUM CHLORIDE
     Indication: Vehicle solution use
     Dosage: 100 ML, 1X/DAY
     Route: 041
     Dates: start: 20230602, end: 20230602
  10. DEXTROSE\SODIUM CHLORIDE [Concomitant]
     Active Substance: DEXTROSE\SODIUM CHLORIDE
     Indication: Vehicle solution use
     Dosage: 50 ML, 1X/DAY
     Route: 041
     Dates: start: 20230602, end: 20230602
  11. DEXTROSE [Concomitant]
     Active Substance: DEXTROSE\DEXTROSE MONOHYDRATE
     Indication: Infantile diarrhoea
     Dosage: 100 ML, 1X/DAY
     Route: 041
     Dates: start: 20230603, end: 20230606
  12. MONTMORILLONITE [Concomitant]
     Active Substance: MONTMORILLONITE
     Indication: Infantile diarrhoea
     Dosage: 1 G, 3X/DAY
     Route: 048
     Dates: start: 20230603, end: 20230605

REACTIONS (5)
  - Rash [Recovering/Resolving]
  - Crying [Recovering/Resolving]
  - Rash erythematous [Recovering/Resolving]
  - Hypersensitivity [Recovering/Resolving]
  - Off label use [Unknown]

NARRATIVE: CASE EVENT DATE: 20230604
